FAERS Safety Report 10749444 (Version 1)
Quarter: 2015Q1

REPORT INFORMATION
  Report Type: Spontaneous
  Country: FR (occurrence: FR)
  Receive Date: 20150129
  Receipt Date: 20150129
  Transmission Date: 20150721
  Serious: Yes (Hospitalization)
  Sender: FDA-Public Use
  Company Number: FR-TEVA-537040USA

PATIENT
  Sex: Male

DRUGS (17)
  1. ALKERAN [Suspect]
     Active Substance: MELPHALAN
     Dosage: UNK UNK, UNKNOWN FREQ.
     Route: 042
     Dates: start: 201001, end: 201011
  2. BENDAMUSTINE HYDROCHLORIDE [Suspect]
     Active Substance: BENDAMUSTINE HYDROCHLORIDE
     Indication: PLASMA CELL MYELOMA
     Dosage: UNK, UNKNOWN FREQ.
     Route: 042
     Dates: start: 201309, end: 201312
  3. BORTEZOMIB [Suspect]
     Active Substance: BORTEZOMIB
     Dosage: UNK UNK, UNKNOWN FREQ.
     Route: 065
     Dates: start: 2007, end: 200707
  4. ADRIAMYCIN [Suspect]
     Active Substance: DOXORUBICIN HYDROCHLORIDE
     Dosage: UNK, UNKNOWN FREQ.
     Route: 042
  5. ALKERAN [Suspect]
     Active Substance: MELPHALAN
     Indication: PLASMA CELL MYELOMA
     Dosage: UNK UNK, UNKNOWN FREQ.
     Route: 042
  6. ADRIAMYCIN [Suspect]
     Active Substance: DOXORUBICIN HYDROCHLORIDE
     Indication: PLASMA CELL MYELOMA
     Dosage: UNK, UNKNOWN FREQ.
     Route: 042
     Dates: start: 200301
  7. POMALIDOMIDE [Suspect]
     Active Substance: POMALIDOMIDE
     Indication: PLASMA CELL MYELOMA
     Dosage: UNK, UNKNOWN FREQ.
     Route: 048
     Dates: start: 201402, end: 201411
  8. REVLIMID [Suspect]
     Active Substance: LENALIDOMIDE
     Indication: PLASMA CELL MYELOMA
     Dosage: UNK, UNKNOWN FREQ.
     Route: 048
     Dates: start: 201001, end: 201011
  9. DEXAMETHASONE. [Suspect]
     Active Substance: DEXAMETHASONE
     Indication: PLASMA CELL MYELOMA
     Dosage: UNK, UNKNOWN FREQ.
     Route: 065
     Dates: start: 200301
  10. ALKERAN [Suspect]
     Active Substance: MELPHALAN
     Dosage: UNK, UNKNOWN FREQ.
     Route: 042
     Dates: start: 201001, end: 201011
  11. VINCRISTINE [Suspect]
     Active Substance: VINCRISTINE
     Indication: PLASMA CELL MYELOMA
     Dosage: UNK UNK, UNKNOWN FREQ.
     Route: 042
     Dates: start: 200301, end: 200305
  12. THALIDOMIDE [Suspect]
     Active Substance: THALIDOMIDE
     Indication: PLASMA CELL MYELOMA
     Dosage: UNK, UNKNOWN FREQ.
     Route: 048
     Dates: end: 200707
  13. DEXAMETHASONE. [Suspect]
     Active Substance: DEXAMETHASONE
     Dosage: UNK, UNKNOWN FREQ.
     Route: 065
     Dates: start: 200301, end: 200707
  14. BORTEZOMIB [Suspect]
     Active Substance: BORTEZOMIB
     Indication: PLASMA CELL MYELOMA
     Dosage: UNK UNK, UNKNOWN FREQ.
     Route: 042
     Dates: start: 200301, end: 200305
  15. DEXAMETHASONE. [Suspect]
     Active Substance: DEXAMETHASONE
     Dosage: UNK, UNKNOWN FREQ.
     Route: 065
     Dates: start: 201402, end: 201411
  16. ALKERAN [Suspect]
     Active Substance: MELPHALAN
     Indication: PLASMA CELL MYELOMA
     Dosage: UNK, UNKNOWN FREQ.
     Route: 042
  17. PREDNISONE. [Suspect]
     Active Substance: PREDNISONE
     Indication: PLASMA CELL MYELOMA
     Dosage: UNK, UNKNOWN FREQ.
     Route: 065
     Dates: start: 201001, end: 201011

REACTIONS (2)
  - Pulmonary mass [Not Recovered/Not Resolved]
  - Paresis [Not Recovered/Not Resolved]
